FAERS Safety Report 11778531 (Version 2)
Quarter: 2015Q4

REPORT INFORMATION
  Report Type: Spontaneous
  Country: DE (occurrence: DE)
  Receive Date: 20151125
  Receipt Date: 20151125
  Transmission Date: 20160304
  Serious: Yes (Congenital Anomaly)
  Sender: FDA-Public Use
  Company Number: GXKR2015DE005170

PATIENT

DRUGS (6)
  1. ACETYLSALICYLIC ACID [Suspect]
     Active Substance: ASPIRIN
     Indication: ASPIRIN-EXACERBATED RESPIRATORY DISEASE
     Dosage: 300 [MG/D (1800 BIS 100) ]/ WK 0-5:300MG/D;WK 6+5:1800 MG/D; 6+6:1250 MG; FROM 7+0:300 MG/D; REDUCED
     Route: 064
  2. BUDESONIDE W/FORMOTEROL FUMARATE [Concomitant]
     Active Substance: BUDESONIDE\FORMOTEROL FUMARATE
     Indication: ASTHMA
     Route: 064
  3. NASONEX [Concomitant]
     Active Substance: MOMETASONE FUROATE
     Indication: NASAL POLYPS
     Dosage: IF REQUIRED
     Route: 064
  4. BUDES N [Suspect]
     Active Substance: BUDESONIDE
     Route: 064
  5. MONTELUKAST [Concomitant]
     Active Substance: MONTELUKAST SODIUM
     Indication: ASTHMA
     Route: 064
  6. PENICILLIN NOS [Concomitant]
     Active Substance: PENICILLIN
     Indication: PREMATURE RUPTURE OF MEMBRANES
     Route: 064

REACTIONS (2)
  - Coarctation of the aorta [Recovered/Resolved with Sequelae]
  - Atrial septal defect [Unknown]
